FAERS Safety Report 20465523 (Version 5)
Quarter: 2022Q3

REPORT INFORMATION
  Report Type: Other
  Country: US (occurrence: None)
  Receive Date: 20220212
  Receipt Date: 20220923
  Transmission Date: 20221027
  Serious: Yes (Hospitalization)
  Sender: FDA-Public Use
  Company Number: US-ROCHE-3021110

PATIENT
  Sex: Female
  Weight: 108.96 kg

DRUGS (4)
  1. OCREVUS [Suspect]
     Active Substance: OCRELIZUMAB
     Indication: Relapsing multiple sclerosis
     Dosage: ON DAY 1 AND DAY 15. DATE OF TREATMENT: 07/DEC/2020, 10/MAY/2021
     Route: 042
     Dates: start: 20201207
  2. OCREVUS [Suspect]
     Active Substance: OCRELIZUMAB
     Indication: Secondary progressive multiple sclerosis
     Route: 042
  3. COVID-19 VACCINE NOS [Suspect]
     Active Substance: COVID-19 VACCINE NOS
     Indication: COVID-19
     Route: 065
     Dates: start: 20210506, end: 20210506
  4. BACLOFEN [Concomitant]
     Active Substance: BACLOFEN

REACTIONS (5)
  - Cystitis [Recovered/Resolved]
  - Thrombosis [Not Recovered/Not Resolved]
  - COVID-19 [Recovered/Resolved]
  - Gait disturbance [Recovered/Resolved with Sequelae]
  - Dysgraphia [Recovering/Resolving]

NARRATIVE: CASE EVENT DATE: 20220101
